FAERS Safety Report 18929026 (Version 1)
Quarter: 2021Q1

REPORT INFORMATION
  Report Type: Spontaneous
  Country: US (occurrence: US)
  Receive Date: 20210223
  Receipt Date: 20210223
  Transmission Date: 20210420
  Serious: No
  Sender: FDA-Public Use
  Company Number: US-ROCHE-2610704

PATIENT
  Age: 4 Year
  Sex: Female

DRUGS (1)
  1. NUTROPIN AQ [Suspect]
     Active Substance: SOMATROPIN
     Indication: CONGENITAL ANOMALY
     Route: 058
     Dates: start: 201912

REACTIONS (1)
  - Lordosis [Unknown]

NARRATIVE: CASE EVENT DATE: 20200527
